FAERS Safety Report 7206412-5 (Version None)
Quarter: 2011Q1

REPORT INFORMATION
  Report Type: 
  Country: None (occurrence: None)
  Receive Date: 20110103
  Receipt Date: 20110103
  Transmission Date: 20110831
  Serious: Yes (Hospitalization)
  Sender: FDA-Public Use
  Company Number: PHHO2008NL03056

PATIENT
  Sex: Female
  Weight: 63.4 kg

DRUGS (4)
  1. SANDOSTATIN LAR [Suspect]
     Indication: CARCINOID TUMOUR
     Dosage: DOUBLE BLIND
     Dates: start: 20080216
  2. PLACEBO [Suspect]
     Dosage: DOUBLE BLIND
     Route: 048
     Dates: start: 20080303
  3. PLACEBO [Suspect]
     Indication: CARCINOID TUMOUR
     Dosage: PLACEBO
     Route: 048
     Dates: start: 20080216
  4. SANDOSTATIN LAR [Suspect]
     Dosage: DOUBLE BLIND
     Dates: start: 20080303

REACTIONS (1)
  - ABDOMINAL PAIN [None]
